FAERS Safety Report 9704853 (Version 2)
Quarter: 2013Q4

REPORT INFORMATION
  Report Type: Spontaneous
  Country: US (occurrence: US)
  Receive Date: 20131122
  Receipt Date: 20131125
  Transmission Date: 20140711
  Serious: Yes (Other)
  Sender: FDA-Public Use
  Company Number: US-ROCHE-1307694

PATIENT
  Age: 23 Year
  Sex: Female
  Weight: 113.95 kg

DRUGS (3)
  1. XOLAIR [Suspect]
     Indication: ASTHMA
     Route: 058
     Dates: start: 20121212, end: 20130916
  2. XOLAIR [Suspect]
     Route: 058
     Dates: start: 20130916, end: 20131114
  3. SINGULAIR [Concomitant]
     Indication: ASTHMA
     Route: 048
     Dates: start: 20121022

REACTIONS (5)
  - Feeling hot [Recovered/Resolved]
  - Hyperhidrosis [Recovered/Resolved]
  - Chest discomfort [Recovered/Resolved]
  - Cough [Recovered/Resolved]
  - Sputum increased [Recovered/Resolved]
